FAERS Safety Report 18028282 (Version 1)
Quarter: 2020Q3

REPORT INFORMATION
  Report Type: Spontaneous
  Country: US (occurrence: US)
  Receive Date: 20200715
  Receipt Date: 20200715
  Transmission Date: 20201103
  Serious: Yes (Other)
  Sender: FDA-Public Use
  Company Number: US-GILEAD-2020-0472223

PATIENT
  Age: 59 Year
  Sex: Female
  Weight: 94.01 kg

DRUGS (21)
  1. REMDESIVIR. [Suspect]
     Active Substance: REMDESIVIR
     Dosage: 100 MG, QD
     Route: 042
     Dates: start: 20200603, end: 20200604
  2. CALCIUM GLUCONATE. [Concomitant]
     Active Substance: CALCIUM GLUCONATE
  3. MIDODRINE [Concomitant]
     Active Substance: MIDODRINE
  4. MULTIVITAMINS [VITAMINS NOS] [Concomitant]
     Active Substance: VITAMINS
  5. SODIUM CHLORIDE. [Concomitant]
     Active Substance: SODIUM CHLORIDE
  6. ACYCLOVIR [ACICLOVIR] [Concomitant]
     Active Substance: ACYCLOVIR
  7. POTASSIUM PHOSPHATE DIBASIC [Concomitant]
     Active Substance: POTASSIUM PHOSPHATE, DIBASIC
  8. SODIUM PHOSPHATE [Concomitant]
     Active Substance: SODIUM PHOSPHATE
  9. SULFAMETHOXAZOLE AND TRIMETHOPRIM [Concomitant]
     Active Substance: SULFAMETHOXAZOLE\TRIMETHOPRIM
  10. ALBUTEROL HFA [Concomitant]
     Active Substance: ALBUTEROL SULFATE
  11. GUAIFENESIN. [Concomitant]
     Active Substance: GUAIFENESIN
  12. REMDESIVIR. [Suspect]
     Active Substance: REMDESIVIR
     Indication: COVID-19
     Dosage: 200 MG, QD
     Route: 042
     Dates: start: 20200602, end: 20200602
  13. CLONIDINE. [Concomitant]
     Active Substance: CLONIDINE
  14. OXYCODONE [Concomitant]
     Active Substance: OXYCODONE
  15. FENTANYL. [Concomitant]
     Active Substance: FENTANYL
  16. VITAMIN D3 [Concomitant]
     Active Substance: CHOLECALCIFEROL
  17. FUROSEMIDE. [Concomitant]
     Active Substance: FUROSEMIDE
  18. FAMOTIDINE. [Concomitant]
     Active Substance: FAMOTIDINE
  19. THIAMINE. [Concomitant]
     Active Substance: THIAMINE
  20. ASPIRIN (E.C.) [Concomitant]
     Active Substance: ASPIRIN
  21. POTASSIUM CHLORIDE. [Concomitant]
     Active Substance: POTASSIUM CHLORIDE

REACTIONS (2)
  - Acute kidney injury [Recovered/Resolved]
  - Blood creatinine increased [Recovered/Resolved]

NARRATIVE: CASE EVENT DATE: 20200602
